FAERS Safety Report 9387330 (Version 1)
Quarter: 2013Q3

REPORT INFORMATION
  Report Type: Spontaneous
  Country: US (occurrence: US)
  Receive Date: 20130708
  Receipt Date: 20130708
  Transmission Date: 20140515
  Serious: No
  Sender: FDA-Public Use
  Company Number: US-B.I. PHARMACEUTICALS,INC./RIDGEFIELD-2013-BI-19184BP

PATIENT
  Age: 77 Year
  Sex: Male

DRUGS (1)
  1. COMBIVENT [Suspect]
     Dosage: STRENGTH: 20 MCG / 100 MCG; DAILY DOSE: 40 MCG/ 200 MCG
     Route: 055
     Dates: start: 20130626

REACTIONS (1)
  - Drug prescribing error [Unknown]
